FAERS Safety Report 20248089 (Version 3)
Quarter: 2022Q1

REPORT INFORMATION
  Report Type: Spontaneous
  Country: US (occurrence: None)
  Receive Date: 20211229
  Receipt Date: 20220112
  Transmission Date: 20220423
  Serious: Yes (Other)
  Sender: FDA-Public Use
  Company Number: 2021A892760

PATIENT
  Age: 68 Year
  Sex: Female
  Weight: 113.4 kg

DRUGS (1)
  1. SYMBICORT [Suspect]
     Active Substance: BUDESONIDE\FORMOTEROL FUMARATE DIHYDRATE
     Indication: Asthma
     Dosage: 160/4.5MCG, 2 PUFFS TWICE DAILY
     Route: 055
     Dates: start: 2015

REACTIONS (13)
  - Interstitial lung disease [Unknown]
  - Lung neoplasm malignant [Unknown]
  - Pulmonary fibrosis [Unknown]
  - Speech disorder [Unknown]
  - Dysphonia [Unknown]
  - Nasal congestion [Unknown]
  - Amnesia [Unknown]
  - Cough [Unknown]
  - Dyspnoea [Unknown]
  - Wheezing [Unknown]
  - Total lung capacity abnormal [Unknown]
  - Lung disorder [Unknown]
  - Choking [Unknown]

NARRATIVE: CASE EVENT DATE: 20190101
